FAERS Safety Report 7985610-7 (Version None)
Quarter: 2011Q4

REPORT INFORMATION
  Report Type: 
  Country: None (occurrence: None)
  Receive Date: 20111216
  Receipt Date: 20111208
  Transmission Date: 20120403
  Serious: Yes (Hospitalization)
  Sender: FDA-Public Use
  Company Number: AU-JNJFOC-20111206540

PATIENT
  Age: 76 Year
  Sex: Male

DRUGS (1)
  1. HALOPERIDOL [Suspect]
     Indication: AGITATION
     Route: 065

REACTIONS (3)
  - SEDATION [None]
  - FALL [None]
  - HIP FRACTURE [None]
